FAERS Safety Report 9416052 (Version 1)
Quarter: 2013Q3

REPORT INFORMATION
  Report Type: Spontaneous
  Country: US (occurrence: None)
  Receive Date: 20130723
  Receipt Date: 20130723
  Transmission Date: 20140515
  Serious: Yes (Death)
  Sender: FDA-Public Use
  Company Number: None

PATIENT
  Age: 84 Year
  Sex: Male
  Weight: 89.5 kg

DRUGS (1)
  1. XARELTO [Suspect]
     Indication: ATRIAL FIBRILLATION
     Dosage: 15 MG BY MOUTH DAILY
     Route: 048

REACTIONS (5)
  - Pain in extremity [None]
  - Asthenia [None]
  - Haematoma [None]
  - Oedema peripheral [None]
  - Pulse absent [None]
